FAERS Safety Report 16463676 (Version 1)
Quarter: 2019Q3

REPORT INFORMATION
  Report Type: Spontaneous
  Country: US (occurrence: US)
  Receive Date: 20190620
  Receipt Date: 20190620
  Transmission Date: 20191004
  Serious: Yes (Hospitalization)
  Sender: FDA-Public Use
  Company Number: None

PATIENT
  Sex: Female

DRUGS (18)
  1. BENLYSTA [Suspect]
     Active Substance: BELIMUMAB
     Indication: SYSTEMIC LUPUS ERYTHEMATOSUS
     Dosage: ?          OTHER FREQUENCY:WEEKLY;?
     Route: 058
     Dates: start: 20180321
  2. DOXYCYCLINE. [Concomitant]
     Active Substance: DOXYCYCLINE
  3. PREDNISONE. [Concomitant]
     Active Substance: PREDNISONE
  4. PREDNISONE. [Concomitant]
     Active Substance: PREDNISONE
  5. MELOXICAM. [Concomitant]
     Active Substance: MELOXICAM
  6. RANITIDINE. [Concomitant]
     Active Substance: RANITIDINE
  7. PREDNISOLONE. [Concomitant]
     Active Substance: PREDNISOLONE
  8. BISACODYL. [Concomitant]
     Active Substance: BISACODYL
  9. VENTOLIN [Concomitant]
     Active Substance: ALBUTEROL SULFATE
  10. FUROSEMIDE. [Concomitant]
     Active Substance: FUROSEMIDE
  11. DULOXETINE. [Concomitant]
     Active Substance: DULOXETINE
  12. MONTELUKAST [Concomitant]
     Active Substance: MONTELUKAST SODIUM
  13. VALACYCLOVIR [Concomitant]
     Active Substance: VALACYCLOVIR HYDROCHLORIDE
  14. WARFARIN [Concomitant]
     Active Substance: WARFARIN
  15. FOLIC ACID. [Concomitant]
     Active Substance: FOLIC ACID
  16. MOXIFLOXACIN. [Concomitant]
     Active Substance: MOXIFLOXACIN
  17. METHOTREXATE. [Concomitant]
     Active Substance: METHOTREXATE
  18. LEUCOVORIN. [Concomitant]
     Active Substance: LEUCOVORIN

REACTIONS (2)
  - Nausea [None]
  - Therapy cessation [None]
